FAERS Safety Report 4761101-1 (Version None)
Quarter: 2005Q3

REPORT INFORMATION
  Report Type: 
  Country: None (occurrence: None)
  Receive Date: 20050901
  Receipt Date: 20050901
  Transmission Date: 20060218
  Serious: Yes (Hospitalization, Other)
  Sender: FDA-Public Use
  Company Number: None

PATIENT
  Sex: Male
  Weight: 92.7 kg

DRUGS (14)
  1. RITUXIMAB [Suspect]
     Indication: CHRONIC LYMPHOCYTIC LEUKAEMIA
     Dosage: SEE IMAGE
     Route: 042
     Dates: start: 20050824, end: 20050824
  2. RITUXIMAB [Suspect]
     Indication: CHRONIC LYMPHOCYTIC LEUKAEMIA
     Dosage: SEE IMAGE
     Route: 042
     Dates: start: 20050822
  3. PENTOSTATIN [Suspect]
     Dosage: SEE IMAGE
     Route: 042
     Dates: start: 20050822, end: 20050822
  4. CYCLOPHOSPHAMIDE [Suspect]
     Dosage: SEE IMAGE
     Route: 042
     Dates: start: 20050822, end: 20050822
  5. RITUXIMAB [Suspect]
     Dosage: SEE IMAGE
     Route: 042
     Dates: start: 20050824, end: 20050824
  6. RITUXIMAB [Suspect]
     Dosage: SEE IMAGE
     Route: 042
     Dates: start: 20050822
  7. ACYCLOVIR [Concomitant]
  8. ALLOPURINOL [Concomitant]
  9. BACTRIM DS [Concomitant]
  10. COMPAZINE [Concomitant]
  11. MULTI-VITAMIN [Concomitant]
  12. PHOSLO [Concomitant]
  13. ZOCOR [Concomitant]
  14. ZOFRAN [Concomitant]

REACTIONS (4)
  - BODY TEMPERATURE INCREASED [None]
  - CHILLS [None]
  - SOMNOLENCE [None]
  - TUMOUR LYSIS SYNDROME [None]
